FAERS Safety Report 6776243-9 (Version None)
Quarter: 2010Q2

REPORT INFORMATION
  Report Type: 
  Country: None (occurrence: None)
  Receive Date: 20100617
  Receipt Date: 20100610
  Transmission Date: 20101027
  Serious: Yes (Hospitalization, Other)
  Sender: FDA-Public Use
  Company Number: US-AMGEN-QUU409048

PATIENT
  Sex: Male

DRUGS (14)
  1. NPLATE [Suspect]
     Indication: IDIOPATHIC THROMBOCYTOPENIC PURPURA
     Dates: start: 20091007
  2. CORTICOSTEROIDS [Concomitant]
     Dates: start: 20040825
  3. IMMU-G [Concomitant]
     Dates: start: 20090115, end: 20090926
  4. PREDNISONE [Concomitant]
  5. ZANTAC [Concomitant]
  6. MULTIVITAMINS AND IRON [Concomitant]
  7. FERROUS SULFATE TAB [Concomitant]
  8. LISINOPRIL [Concomitant]
  9. DOCUSATE [Concomitant]
  10. PROCARDIA XL [Concomitant]
  11. METOPROLOL [Concomitant]
  12. MAGNESIUM OXIDE [Concomitant]
  13. AMITRIPTYLINE HYDROCHLORIDE [Concomitant]
  14. TYLENOL [Concomitant]

REACTIONS (3)
  - LUNG CONSOLIDATION [None]
  - PLATELET COUNT DECREASED [None]
  - PULMONARY EMBOLISM [None]
